FAERS Safety Report 5278381-9 (Version None)
Quarter: 2007Q1

REPORT INFORMATION
  Report Type: 
  Country: None (occurrence: None)
  Receive Date: 20070322
  Receipt Date: 20070306
  Transmission Date: 20070707
  Serious: Yes (Hospitalization, Other)
  Sender: FDA-Public Use
  Company Number: PAR_1371_2007

PATIENT
  Age: 40 Year
  Sex: Male

DRUGS (3)
  1. IBUPROFEN [Suspect]
     Indication: INFLUENZA LIKE ILLNESS
     Dosage: DF
  2. PARACETAMOL [Suspect]
     Dosage: DF
  3. VALERIAN [Suspect]
     Dosage: DF UNK UNK

REACTIONS (4)
  - DRUG TOXICITY [None]
  - EPSTEIN-BARR VIRUS INFECTION [None]
  - HEPATITIS CHOLESTATIC [None]
  - HEPATOMEGALY [None]
